FAERS Safety Report 8989628 (Version 2)
Quarter: 2013Q1

REPORT INFORMATION
  Report Type: Spontaneous
  Country: US (occurrence: US)
  Receive Date: 20121228
  Receipt Date: 20130129
  Transmission Date: 20140127
  Serious: No
  Sender: FDA-Public Use
  Company Number: US-009507513-1212USA007944

PATIENT
  Sex: Female
  Weight: 67.12 kg

DRUGS (8)
  1. VICTRELIS [Suspect]
     Dosage: 4 CAPSULES (800 MG), THREE TIMES A DAY (EVERY 7-9 HOURS)
     Route: 048
  2. RIBAPAK [Suspect]
     Dosage: 600MG, DAILY
     Route: 048
  3. RIBAPAK [Suspect]
     Indication: HEPATITIS C
     Dosage: 400MG, DAILY
  4. PEGASYS [Suspect]
     Indication: HEPATITIS C
     Dosage: 180MCG/0.5ML
  5. LEVOTHROID [Concomitant]
  6. VITAMINS (UNSPECIFIED) [Concomitant]
  7. CYANOCOBALAMIN [Concomitant]
  8. SYNTHROID [Concomitant]

REACTIONS (5)
  - Pain [Unknown]
  - Fatigue [Unknown]
  - Blood thyroid stimulating hormone abnormal [Unknown]
  - Dysgeusia [Unknown]
  - Haemoglobin decreased [Unknown]
